FAERS Safety Report 7641504-8 (Version None)
Quarter: 2011Q3

REPORT INFORMATION
  Report Type: 
  Country: None (occurrence: None)
  Receive Date: 20110728
  Receipt Date: 20110708
  Transmission Date: 20111222
  Serious: No
  Sender: FDA-Public Use
  Company Number: US-B.I. PHARMACEUTICALS,INC./RIDGEFIELD-2011-BP-17339BP

PATIENT
  Sex: Female

DRUGS (12)
  1. POTASSIUM [Concomitant]
     Indication: SUPPLEMENTATION THERAPY
  2. LASIX [Concomitant]
     Indication: CARDIAC FAILURE CONGESTIVE
  3. XANAX [Concomitant]
     Indication: ANXIETY
  4. PREDNISONE [Concomitant]
     Indication: LUNG NEOPLASM MALIGNANT
  5. CARAFATE [Concomitant]
     Indication: GASTROOESOPHAGEAL REFLUX DISEASE
  6. VICODIN [Concomitant]
     Indication: ARTHRITIS
  7. M.V.I. [Concomitant]
     Indication: SUPPLEMENTATION THERAPY
  8. PREVACID [Concomitant]
     Indication: GASTROOESOPHAGEAL REFLUX DISEASE
  9. SYSTANE EYE DROPS [Concomitant]
     Indication: CATARACT
  10. NITROGLYCERIN [Concomitant]
     Indication: ANGINA PECTORIS
  11. SPIRIVA [Suspect]
     Indication: CHRONIC OBSTRUCTIVE PULMONARY DISEASE
     Dosage: 18 MCG
     Route: 055
     Dates: start: 20100101
  12. ALLEGRA [Concomitant]
     Indication: MULTIPLE ALLERGIES

REACTIONS (1)
  - DRUG INEFFECTIVE [None]
